FAERS Safety Report 15361344 (Version 1)
Quarter: 2018Q3

REPORT INFORMATION
  Report Type: Spontaneous
  Country: TR (occurrence: TR)
  Receive Date: 20180907
  Receipt Date: 20180907
  Transmission Date: 20181010
  Serious: Yes (Other)
  Sender: FDA-Public Use
  Company Number: TR-ENDO PHARMACEUTICALS INC-2018-040985

PATIENT
  Age: 41 Year
  Sex: Male

DRUGS (2)
  1. METHYLPREDNISOLONE TABLETS [Suspect]
     Active Substance: METHYLPREDNISOLONE
     Indication: RHINITIS ALLERGIC
     Dosage: UNK UNKNOWN, UNKNOWN
     Route: 065
  2. METHYLPREDNISOLONE TABLETS [Suspect]
     Active Substance: METHYLPREDNISOLONE
     Indication: NASAL POLYPS
     Dosage: 4 MG, UNKNOWN
     Route: 048

REACTIONS (2)
  - Osteomyelitis bacterial [Recovered/Resolved]
  - Intentional product misuse [Recovered/Resolved]
